FAERS Safety Report 7442765-0 (Version None)
Quarter: 2011Q2

REPORT INFORMATION
  Report Type: 
  Country: None (occurrence: None)
  Receive Date: 20110428
  Receipt Date: 20110419
  Transmission Date: 20111010
  Serious: Yes (Hospitalization)
  Sender: FDA-Public Use
  Company Number: US-ASTRAZENECA-2010SE08567

PATIENT
  Age: 47 Year
  Sex: Female
  Weight: 68 kg

DRUGS (7)
  1. SEROQUEL [Suspect]
     Route: 048
     Dates: start: 20090101
  2. SEROQUEL [Suspect]
     Route: 048
     Dates: start: 20090101
  3. SEROQUEL [Suspect]
     Indication: DEPRESSION
     Route: 048
     Dates: start: 20090101, end: 20100101
  4. SEROQUEL [Suspect]
     Indication: BIPOLAR DISORDER
     Route: 048
     Dates: start: 20090101, end: 20100101
  5. SEROQUEL [Suspect]
     Indication: SLEEP DISORDER
     Route: 048
     Dates: start: 20090101, end: 20100101
  6. ANTI-DEPRESSANT [Concomitant]
     Indication: DEPRESSION
     Dosage: DAILY
     Route: 048
  7. SEROQUEL [Suspect]
     Route: 048
     Dates: start: 20090101

REACTIONS (13)
  - INTERVERTEBRAL DISC PROTRUSION [None]
  - SPINAL OPERATION [None]
  - FALL [None]
  - BACK INJURY [None]
  - HEADACHE [None]
  - NECK INJURY [None]
  - HOSPITALISATION [None]
  - INSOMNIA [None]
  - LETHARGY [None]
  - MEMORY IMPAIRMENT [None]
  - FATIGUE [None]
  - DRUG DOSE OMISSION [None]
  - ACCIDENT [None]
